FAERS Safety Report 9447780 (Version 1)
Quarter: 2013Q3

REPORT INFORMATION
  Report Type: Spontaneous
  Country: IT (occurrence: None)
  Receive Date: 20130805
  Receipt Date: 20130805
  Transmission Date: 20140515
  Serious: Yes (Other)
  Sender: FDA-Public Use
  Company Number: 1780922

PATIENT
  Age: 46 Year
  Sex: Female

DRUGS (7)
  1. IRINOTECAN HYDROCHLORIDE [Suspect]
     Indication: COLON CANCER
     Route: 042
     Dates: start: 20130422, end: 20130422
  2. FLUOROURACIL TEVA [Suspect]
     Route: 042
     Dates: start: 20130422, end: 20130423
  3. ERBITUX [Suspect]
     Indication: COLON CANCER
     Route: 042
     Dates: start: 20130422, end: 20130422
  4. FLUOROURACIL TEVA [Suspect]
     Indication: COLON CANCER
     Route: 042
     Dates: start: 20130422, end: 20130423
  5. ONDANSETRON [Concomitant]
  6. SOLDESAM [Concomitant]
  7. RANIDIL [Concomitant]

REACTIONS (15)
  - Pain [None]
  - Skin discolouration [None]
  - Epistaxis [None]
  - Diarrhoea [None]
  - Chest pain [None]
  - Abdominal pain [None]
  - Fatigue [None]
  - Conjunctivitis [None]
  - Rash [None]
  - Dry skin [None]
  - Gingival bleeding [None]
  - Skin burning sensation [None]
  - Sensory loss [None]
  - Paraesthesia [None]
  - Toxicity to various agents [None]
